FAERS Safety Report 19983152 (Version 3)
Quarter: 2021Q4

REPORT INFORMATION
  Report Type: Report from Study
  Country: MX (occurrence: MX)
  Receive Date: 20211021
  Receipt Date: 20211218
  Transmission Date: 20220303
  Serious: Yes (Death, Hospitalization)
  Sender: FDA-Public Use
  Company Number: MX-NOVARTISPH-NVSC2021MX234810

PATIENT
  Sex: Male
  Weight: 60 kg

DRUGS (6)
  1. MEKINIST [Suspect]
     Active Substance: TRAMETINIB DIMETHYL SULFOXIDE
     Indication: Neoplasm malignant
     Dosage: 0.5 MG, BID
     Route: 048
     Dates: start: 20210908
  2. MEKINIST [Suspect]
     Active Substance: TRAMETINIB DIMETHYL SULFOXIDE
     Indication: Thyroid cancer
     Dosage: 2 DOSAGE FORM, QD (5 MG)
     Route: 048
     Dates: start: 202109
  3. TAFINLAR [Suspect]
     Active Substance: DABRAFENIB MESYLATE
     Indication: Neoplasm malignant
     Dosage: 75 MG, BID
     Route: 048
     Dates: start: 20210908
  4. TAFINLAR [Suspect]
     Active Substance: DABRAFENIB MESYLATE
     Indication: Thyroid cancer
     Dosage: 2 DOSAGE FORM, QD
     Route: 048
     Dates: start: 202109
  5. TAFINLAR [Suspect]
     Active Substance: DABRAFENIB MESYLATE
     Dosage: 75 MG
     Route: 065
  6. TAFINLAR [Suspect]
     Active Substance: DABRAFENIB MESYLATE
     Dosage: 1 DOSAGE FORM, QD (75 MG)
     Route: 048
     Dates: start: 202109

REACTIONS (3)
  - Myocardial infarction [Fatal]
  - Thyroid cancer [Fatal]
  - Neoplasm malignant [Unknown]
